FAERS Safety Report 4556249-0 (Version None)
Quarter: 2005Q1

REPORT INFORMATION
  Report Type: 
  Country: None (occurrence: None)
  Receive Date: 20050119
  Receipt Date: 20041220
  Transmission Date: 20050727
  Serious: Yes (Hospitalization)
  Sender: FDA-Public Use
  Company Number: DE-MERCK-0412DEU00196

PATIENT
  Age: 64 Year
  Sex: Male

DRUGS (1)
  1. VIOXX [Suspect]
     Route: 048
     Dates: start: 20040101, end: 20041001

REACTIONS (5)
  - CONSTIPATION [None]
  - DIARRHOEA [None]
  - FATIGUE [None]
  - OSTEOMYELITIS [None]
  - PULMONARY EMBOLISM [None]
